FAERS Safety Report 9459432 (Version 2)
Quarter: 2013Q3

REPORT INFORMATION
  Report Type: Report from Study
  Country: US (occurrence: US)
  Receive Date: 20130815
  Receipt Date: 20130819
  Transmission Date: 20140515
  Serious: Yes (Hospitalization, Other)
  Sender: FDA-Public Use
  Company Number: US-ROCHE-1181117

PATIENT
  Age: 47 Year
  Sex: Female
  Weight: 107.14 kg

DRUGS (25)
  1. PEGASYS [Suspect]
     Indication: CHRONIC HEPATITIS C
     Route: 058
     Dates: start: 20121213, end: 201212
  2. PEGASYS [Suspect]
     Route: 058
  3. PEGASYS [Suspect]
     Route: 058
     Dates: start: 20130122, end: 20130611
  4. COPEGUS [Suspect]
     Indication: CHRONIC HEPATITIS C
     Dosage: IN DIVIDED DOSES OF 400 MG IN MORNING AND 400 MG AT NIGHT
     Route: 048
     Dates: start: 20121222
  5. COPEGUS [Suspect]
     Route: 048
     Dates: start: 20121213, end: 201212
  6. COPEGUS [Suspect]
     Dosage: DIVIDED DOSE
     Route: 048
     Dates: start: 20130122
  7. COPEGUS [Suspect]
     Route: 048
     Dates: end: 20130611
  8. FENTANYL PATCH [Concomitant]
     Dosage: 100 MCG/HR TRANSDERMAL FILM
     Route: 062
  9. FLEXERIL [Concomitant]
     Route: 048
  10. CREON [Concomitant]
     Route: 048
  11. LASIX [Concomitant]
     Route: 048
  12. ENALAPRIL [Concomitant]
     Route: 048
  13. LANTUS [Concomitant]
     Dosage: HS
     Route: 058
  14. MECLIZINE HCL [Concomitant]
     Route: 048
  15. TIZANIDINE HCL [Concomitant]
     Route: 048
  16. PHENERGAN [Concomitant]
     Route: 048
  17. MORPHINE [Concomitant]
     Route: 048
  18. LYRICA [Concomitant]
     Route: 048
  19. LACTULOSE [Concomitant]
     Route: 048
  20. HYDROMORPHONE [Concomitant]
     Route: 048
  21. DIZEPAM [Concomitant]
     Route: 048
  22. HUMALOG [Concomitant]
  23. INSULIN ASPART PROTAMINE [Concomitant]
     Route: 058
  24. METOCLOPRAMIDE [Concomitant]
     Route: 048
  25. ATROPINE SULFATE/DIPHENOXYLATE HYDROCHLORIDE [Concomitant]
     Route: 048

REACTIONS (12)
  - Pneumonia [Recovered/Resolved]
  - Ammonia increased [Unknown]
  - Hepatic cirrhosis [Unknown]
  - Hepatic encephalopathy [Unknown]
  - Blood iron decreased [Unknown]
  - Injection site bruising [Unknown]
  - Protein total decreased [Unknown]
  - Fatigue [Unknown]
  - Dyspnoea exertional [Unknown]
  - Malaise [Unknown]
  - Pyrexia [Recovered/Resolved]
  - Oral herpes [Unknown]
